FAERS Safety Report 25084195 (Version 1)
Quarter: 2025Q1

REPORT INFORMATION
  Report Type: Spontaneous
  Country: FR (occurrence: FR)
  Receive Date: 20250317
  Receipt Date: 20250317
  Transmission Date: 20250408
  Serious: Yes (Other)
  Sender: TEVA
  Company Number: None

PATIENT
  Age: 85 Year
  Sex: Female

DRUGS (7)
  1. VENLAFAXINE [Suspect]
     Active Substance: VENLAFAXINE HYDROCHLORIDE
     Indication: Depression
     Route: 048
     Dates: start: 20241104, end: 20241112
  2. CALCIDOSE [Concomitant]
     Indication: Product used for unknown indication
     Dosage: 500, POWDER FOR ORAL SUSPENSION IN SACHET
     Route: 048
  3. CHOLECALCIFEROL [Concomitant]
     Active Substance: CHOLECALCIFEROL
     Indication: Product used for unknown indication
     Dosage: ORAL SOLUTION IN AMPOULE
     Route: 048
  4. OXAZEPAM [Concomitant]
     Active Substance: OXAZEPAM
     Indication: Product used for unknown indication
     Route: 048
  5. CANDESARTAN EG [Concomitant]
     Indication: Product used for unknown indication
     Dosage: SCORED TABLET
     Route: 048
  6. PAROXETINE EG [Concomitant]
     Indication: Product used for unknown indication
     Dosage: FILM-COATED, SCORED TABLET
     Route: 048
  7. LANSOPRAZOLE [Concomitant]
     Active Substance: LANSOPRAZOLE
     Indication: Product used for unknown indication
     Route: 048

REACTIONS (1)
  - Atrial flutter [Recovered/Resolved]

NARRATIVE: CASE EVENT DATE: 20241112
